FAERS Safety Report 5097695-9 (Version None)
Quarter: 2006Q3

REPORT INFORMATION
  Report Type: 
  Country: None (occurrence: None)
  Receive Date: 20060901
  Receipt Date: 20060825
  Transmission Date: 20061208
  Serious: Yes (Life-Threatening, Other)
  Sender: FDA-Public Use
  Company Number: DE-2006-022879

PATIENT
  Age: 65 Year
  Sex: Male
  Weight: 67 kg

DRUGS (1)
  1. MAGNEVIST [Suspect]
     Indication: NUCLEAR MAGNETIC RESONANCE IMAGING
     Dosage: 1 DOSE, INTRAVENOUS
     Route: 042
     Dates: start: 20060809, end: 20060809

REACTIONS (4)
  - ALVEOLITIS [None]
  - CHEST X-RAY ABNORMAL [None]
  - DYSPNOEA [None]
  - PLEURAL EFFUSION [None]
